FAERS Safety Report 14554234 (Version 2)
Quarter: 2018Q1

REPORT INFORMATION
  Report Type: Spontaneous
  Country: US (occurrence: US)
  Receive Date: 20180220
  Receipt Date: 20180223
  Transmission Date: 20180509
  Serious: Yes (Other)
  Sender: FDA-Public Use
  Company Number: US-PFIZER INC-2018067071

PATIENT
  Age: 21 Year
  Sex: Female
  Weight: 34 kg

DRUGS (1)
  1. REVATIO [Suspect]
     Active Substance: SILDENAFIL CITRATE
     Dosage: 20 MG, THREE TIMES A DAY (TID)

REACTIONS (1)
  - Cardiac failure high output [Unknown]
